FAERS Safety Report 4747858-4 (Version None)
Quarter: 2005Q3

REPORT INFORMATION
  Report Type: 
  Country: None (occurrence: None)
  Receive Date: 20050817
  Receipt Date: 20050817
  Transmission Date: 20060218
  Serious: Yes (Life-Threatening)
  Sender: FDA-Public Use
  Company Number: None

PATIENT
  Sex: Male

DRUGS (4)
  1. FENTANYL [Suspect]
     Dosage: INTRAVENOUS
     Route: 042
  2. HYDROMORPHONE 0.5 MG [Suspect]
     Dosage: INTRAVENOUS
     Route: 042
  3. VERCURONIUM [Concomitant]
  4. PROPOFIL [Concomitant]

REACTIONS (1)
  - RESPIRATORY RATE DECREASED [None]
